FAERS Safety Report 21267822 (Version 1)
Quarter: 2022Q3

REPORT INFORMATION
  Report Type: Spontaneous
  Country: PL (occurrence: PL)
  Receive Date: 20220829
  Receipt Date: 20220829
  Transmission Date: 20221027
  Serious: Yes (Other)
  Sender: FDA-Public Use
  Company Number: PL-MYLANLABS-2022M1049194

PATIENT
  Age: 74 Year
  Sex: Female

DRUGS (8)
  1. PREGABALIN [Suspect]
     Active Substance: PREGABALIN
     Indication: Neuralgia
     Dosage: 50 MILLIGRAM, QD, OVERNIGHT
     Route: 048
  2. PREGABALIN [Suspect]
     Active Substance: PREGABALIN
     Indication: Neuropathy peripheral
     Dosage: OVERNIGHT TO A DOSE OF 450-600 MG / 24 H IN 3 DIVIDED DOSES
     Route: 048
  3. PREGABALIN [Suspect]
     Active Substance: PREGABALIN
     Dosage: 450 MILLIGRAM, QD IN 3 DIVIDED DOSES
     Route: 048
  4. FLUDARABINE [Suspect]
     Active Substance: FLUDARABINE PHOSPHATE
     Indication: Marginal zone lymphoma
     Dosage: UNK
     Route: 065
  5. OXYCODONE [Suspect]
     Active Substance: OXYCODONE
     Indication: Neuralgia
     Dosage: 5 MILLIGRAM, BID ( EVERY 12 H), CONTROLLED-RELEASE, WITH DOSE UP-TITRATION
     Route: 048
  6. OXYCODONE [Suspect]
     Active Substance: OXYCODONE
     Indication: Neuropathy peripheral
  7. DULOXETINE [Suspect]
     Active Substance: DULOXETINE
     Indication: Neuralgia
     Dosage: 30 MILLIGRAM, QD
     Route: 048
  8. DULOXETINE [Suspect]
     Active Substance: DULOXETINE
     Dosage: 60 MILLIGRAM, AM (AFTER A WEEK)
     Route: 048

REACTIONS (4)
  - Neuropathy peripheral [Recovering/Resolving]
  - Therapeutic product effect incomplete [Unknown]
  - Neuralgia [Unknown]
  - Drug ineffective [Unknown]
